FAERS Safety Report 5199140-1 (Version None)
Quarter: 2006Q4

REPORT INFORMATION
  Report Type: 
  Country: None (occurrence: None)
  Receive Date: 20060919
  Receipt Date: 20060426
  Transmission Date: 20070319
  Serious: Yes (Other)
  Sender: FDA-Public Use
  Company Number: HQWYE074601MAY06

PATIENT
  Sex: Male

DRUGS (3)
  1. ADVIL [Suspect]
     Indication: TOOTHACHE
     Dosage: ORAL
     Route: 048
  2. POTASSIUM (POTASSIUM) [Concomitant]
  3. KEFLEX [Concomitant]

REACTIONS (3)
  - HYPERHIDROSIS [None]
  - MYALGIA [None]
  - PARAESTHESIA [None]
